FAERS Safety Report 6207828-6 (Version None)
Quarter: 2009Q2

REPORT INFORMATION
  Report Type: 
  Country: None (occurrence: None)
  Receive Date: 20090522
  Receipt Date: 20090511
  Transmission Date: 20091009
  Serious: Yes (Death)
  Sender: FDA-Public Use
  Company Number: 2008-04013

PATIENT
  Age: 65 Year
  Sex: Male
  Weight: 80.7 kg

DRUGS (2)
  1. VELCADE [Suspect]
     Indication: MANTLE CELL LYMPHOMA
     Dosage: 2.6 MG
     Dates: start: 20080916, end: 20080926
  2. DEXAMETHASONE [Concomitant]

REACTIONS (5)
  - BRONCHOPNEUMONIA [None]
  - CARDIAC FAILURE [None]
  - CARDIOMEGALY [None]
  - FALL [None]
  - PLEURAL EFFUSION [None]
